FAERS Safety Report 4354982-7 (Version None)
Quarter: 2004Q2

REPORT INFORMATION
  Report Type: 
  Country: None (occurrence: None)
  Receive Date: 20040504
  Receipt Date: 20040422
  Transmission Date: 20050107
  Serious: Yes (Other)
  Sender: FDA-Public Use
  Company Number: HQWYE354405APR04

PATIENT
  Age: 57 Year
  Sex: Male

DRUGS (2)
  1. EFFEXOR XR [Suspect]
     Indication: ANXIETY
     Dosage: ORAL; TAPER OFF; ^37.5 STAGE^
     Route: 048
     Dates: end: 20040401
  2. EFFEXOR XR [Suspect]
     Indication: ANXIETY
     Dosage: ORAL; TAPER OFF; ^37.5 STAGE^
     Route: 048
     Dates: start: 20020101

REACTIONS (12)
  - CRYING [None]
  - DRUG INEFFECTIVE [None]
  - DRUG WITHDRAWAL SYNDROME [None]
  - FATIGUE [None]
  - HYPERTENSION [None]
  - PARAESTHESIA [None]
  - POOR PERIPHERAL CIRCULATION [None]
  - RAYNAUD'S PHENOMENON [None]
  - SEXUAL DYSFUNCTION [None]
  - SUICIDAL IDEATION [None]
  - THERAPY NON-RESPONDER [None]
  - TINNITUS [None]
